FAERS Safety Report 5376053-3 (Version None)
Quarter: 2007Q3

REPORT INFORMATION
  Report Type: 
  Country: None (occurrence: None)
  Receive Date: 20070702
  Receipt Date: 20070625
  Transmission Date: 20080115
  Serious: Yes (Disabling, Other)
  Sender: FDA-Public Use
  Company Number: GB-AMGEN-US227311

PATIENT
  Sex: Male
  Weight: 65.9 kg

DRUGS (4)
  1. ENBREL [Suspect]
     Indication: ANKYLOSING SPONDYLITIS
     Route: 058
     Dates: start: 20061222, end: 20070524
  2. ENBREL [Suspect]
     Indication: JUVENILE ARTHRITIS
  3. AMOXICILLIN [Concomitant]
     Indication: LOWER RESPIRATORY TRACT INFECTION
     Route: 048
     Dates: start: 20070207, end: 20070214
  4. LEFLUNOMIDE [Concomitant]
     Indication: SPONDYLOARTHROPATHY
     Route: 048
     Dates: start: 20050526

REACTIONS (2)
  - DEMYELINATION [None]
  - OPTIC NEURITIS [None]
